FAERS Safety Report 7332375-8 (Version None)
Quarter: 2011Q1

REPORT INFORMATION
  Report Type: 
  Country: None (occurrence: None)
  Receive Date: 20110304
  Receipt Date: 20110222
  Transmission Date: 20110831
  Serious: Yes (Hospitalization)
  Sender: FDA-Public Use
  Company Number: B0692992A

PATIENT
  Age: 52 Year
  Sex: Male

DRUGS (24)
  1. ETRAVIRINE [Suspect]
  2. ADVAIR DISKUS 100/50 [Concomitant]
     Dates: start: 20080414
  3. FLUTICASONE [Concomitant]
  4. TADALAFIL [Concomitant]
     Dates: start: 20100806
  5. RALTEGRAVIR [Suspect]
  6. CEVIMELINE [Concomitant]
     Dates: start: 20080610
  7. MIRTAZAPINE [Concomitant]
     Dates: start: 20080303
  8. PREGABALIN [Concomitant]
     Dates: start: 20071210
  9. FENOFIBRATE [Concomitant]
     Dates: start: 20080610
  10. OXYBUTYNIN [Concomitant]
     Dates: start: 20061011
  11. ROSUVASTATIN [Concomitant]
     Dates: start: 20080610
  12. CLONIDINE [Concomitant]
     Dates: start: 20101019
  13. LEVOCETIRIZINE DIHYDROCHLORIDE [Concomitant]
     Dates: start: 20090202
  14. BUPROPION [Concomitant]
     Dates: start: 20061011
  15. ZOFRAN [Concomitant]
  16. LEVOTHYROXINE [Concomitant]
     Dates: start: 20101019
  17. NEBIVOLOL [Concomitant]
     Dates: start: 20091211
  18. OLMESARTAN [Concomitant]
     Dates: start: 20091211
  19. DECA-DURABOLIN [Concomitant]
     Dates: start: 20090202
  20. ESOMEPRAZOLE [Concomitant]
     Dates: start: 20080508
  21. MARAVIROC [Suspect]
     Indication: HIV INFECTION
     Dosage: 600MG TWICE PER DAY
     Route: 048
     Dates: start: 20101118
  22. DEPO-TESTOSTERONE [Concomitant]
     Dates: start: 20101019
  23. CHLORPROMAZINE [Concomitant]
     Dates: start: 20100602
  24. SALBUTAMOL [Concomitant]
     Dates: start: 20091211

REACTIONS (2)
  - BLOOD CREATINE PHOSPHOKINASE INCREASED [None]
  - BLOOD POTASSIUM DECREASED [None]
